FAERS Safety Report 5131680-3 (Version None)
Quarter: 2006Q4

REPORT INFORMATION
  Report Type: 
  Country: None (occurrence: None)
  Receive Date: 20061016
  Receipt Date: 20061002
  Transmission Date: 20070319
  Serious: Yes (Hospitalization)
  Sender: FDA-Public Use
  Company Number: 2006095112

PATIENT
  Age: 51 Year
  Sex: Female

DRUGS (2)
  1. SUTENT [Suspect]
     Indication: RENAL CELL CARCINOMA STAGE UNSPECIFIED
     Dosage: (37.5 MG, 1 IN 1 D), ORAL
     Route: 048
     Dates: start: 20051220
  2. HYDROCHLOROTHIAZIDE [Concomitant]

REACTIONS (14)
  - ASTHENIA [None]
  - BACK PAIN [None]
  - CHEST PAIN [None]
  - CHROMATURIA [None]
  - HEPATOMEGALY [None]
  - INFERIOR VENA CAVAL OCCLUSION [None]
  - MALIGNANT NEOPLASM PROGRESSION [None]
  - METASTASES TO LIVER [None]
  - NEUROMYOPATHY [None]
  - OEDEMA PERIPHERAL [None]
  - PAIN [None]
  - PERFORMANCE STATUS DECREASED [None]
  - RADICULOPATHY [None]
  - URINE COLOUR ABNORMAL [None]
